FAERS Safety Report 9311568 (Version 1)
Quarter: 2013Q2

REPORT INFORMATION
  Report Type: Spontaneous
  Country: IT (occurrence: IT)
  Receive Date: 20130528
  Receipt Date: 20130528
  Transmission Date: 20140414
  Serious: Yes (Hospitalization)
  Sender: FDA-Public Use
  Company Number: IT-SANOFI-AVENTIS-2013SA050053

PATIENT
  Age: 61 Year
  Sex: Female

DRUGS (3)
  1. INSULIN GLULISINE [Suspect]
     Indication: DIABETES MELLITUS
     Route: 058
     Dates: start: 20130101, end: 20130311
  2. INSULIN GLARGINE [Suspect]
     Indication: DIABETES MELLITUS
     Route: 058
     Dates: start: 20130101, end: 20130311
  3. PREGABALIN [Concomitant]

REACTIONS (3)
  - Hypokalaemia [Recovered/Resolved]
  - Hypoglycaemic coma [Recovered/Resolved]
  - Syncope [Recovered/Resolved]
